FAERS Safety Report 9006835 (Version 3)
Quarter: 2014Q1

REPORT INFORMATION
  Report Type: Spontaneous
  Country: FR (occurrence: FR)
  Receive Date: 20130110
  Receipt Date: 20140117
  Transmission Date: 20141002
  Serious: Yes (Other)
  Sender: FDA-Public Use
  Company Number: FR-ASTRAZENECA-2013SE00602

PATIENT
  Age: 23123 Day
  Sex: Female
  Weight: 97 kg

DRUGS (9)
  1. DIPRIVAN [Suspect]
     Indication: ANAESTHESIA
     Route: 042
     Dates: start: 20121203, end: 20121203
  2. CELOCURINE [Suspect]
     Indication: ANAESTHESIA
     Route: 042
     Dates: start: 20121203, end: 20121203
  3. SUFENTA [Suspect]
     Indication: ANAESTHESIA
     Route: 042
     Dates: start: 20121203, end: 20121203
  4. KETAMINE PANPHARMA [Suspect]
     Indication: ANAESTHESIA
     Route: 042
     Dates: start: 20121203, end: 20121203
  5. TRACRIUM [Suspect]
     Indication: ANAESTHESIA
     Route: 042
     Dates: start: 20121203, end: 20121203
  6. HYPNOVEL [Suspect]
     Indication: ANAESTHESIA
     Route: 042
     Dates: start: 20121203, end: 20121203
  7. PARACETAMOL [Concomitant]
  8. TRAMADOL [Concomitant]
  9. VOLTARENE [Concomitant]

REACTIONS (5)
  - Tachycardia [Recovered/Resolved]
  - Oxygen saturation decreased [Recovered/Resolved]
  - Generalised erythema [Recovered/Resolved]
  - Bronchospasm [Recovered/Resolved]
  - Hypotension [Recovered/Resolved]
